FAERS Safety Report 6582335-X (Version None)
Quarter: 2010Q1

REPORT INFORMATION
  Report Type: 
  Country: None (occurrence: None)
  Receive Date: 20100216
  Receipt Date: 20100105
  Transmission Date: 20100710
  Serious: Yes (Death)
  Sender: FDA-Public Use
  Company Number: US-TYCO HEALTHCARE/MALLINCKRODT-T201000300

PATIENT
  Age: 45 Year
  Sex: Male

DRUGS (2)
  1. METHADOSE [Suspect]
     Route: 048
  2. CLONAZEPAM [Suspect]
     Route: 048

REACTIONS (1)
  - COMPLETED SUICIDE [None]
